FAERS Safety Report 13673793 (Version 1)
Quarter: 2017Q2

REPORT INFORMATION
  Report Type: Report from Study
  Country: DE (occurrence: DE)
  Receive Date: 20170621
  Receipt Date: 20170621
  Transmission Date: 20170830
  Serious: Yes (Other)
  Sender: FDA-Public Use
  Company Number: DE-TEVA-743983ACC

PATIENT
  Sex: Female
  Weight: 60 kg

DRUGS (9)
  1. CARFILZOMIB [Suspect]
     Active Substance: CARFILZOMIB
     Indication: PLASMA CELL MYELOMA
     Dosage: (D1,2,8,9,15,16) IN MAINTENANCE PHASE ONLY D1,2,15,16)
     Route: 042
     Dates: start: 20151130
  2. ACICLOVIR [Concomitant]
     Active Substance: ACYCLOVIR
     Indication: ANTIVIRAL PROPHYLAXIS
     Dosage: 800 MILLIGRAM DAILY; (MORNING-NIGHT)
     Route: 048
     Dates: start: 20150129
  3. DEXAMETHASONE. [Suspect]
     Active Substance: DEXAMETHASONE
     Indication: PLASMA CELL MYELOMA
     Dosage: (D1,2,8,9,15,16)) (ACTUAL DOSE 4 MG)
     Route: 048
     Dates: start: 20151130
  4. PANTOZOL [Concomitant]
     Active Substance: PANTOPRAZOLE SODIUM
     Indication: PROPHYLAXIS AGAINST GASTROINTESTINAL ULCER
     Dosage: 1 DOSAGE FORMS DAILY;
     Route: 048
     Dates: start: 20160614
  5. BENDAMUSTINE HYDROCHLORIDE. [Suspect]
     Active Substance: BENDAMUSTINE HYDROCHLORIDE
     Indication: PLASMA CELL MYELOMA
     Dosage: D1+8 (8 CYCLES)
     Route: 042
     Dates: start: 20151130, end: 20160620
  6. CALCIUM + VITAMIN D [Concomitant]
     Active Substance: CALCIUM\VITAMIN D
     Indication: VITAMIN SUPPLEMENTATION
     Dosage: 1 DOSAGE FORMS DAILY; (MORNING)
     Route: 048
  7. XARELTO [Concomitant]
     Active Substance: RIVAROXABAN
     Indication: THROMBOSIS PROPHYLAXIS
     Dosage: 1 DOSAGE FORMS DAILY; (MORNING)
     Route: 048
     Dates: start: 20160210
  8. BELOC-ZOC COMP [Concomitant]
     Active Substance: HYDROCHLOROTHIAZIDE\METOPROLOL SUCCINATE
     Indication: HYPERTENSION
     Dosage: .5 DOSAGE FORMS DAILY; (MORNING)
     Route: 048
     Dates: start: 20150129
  9. CALCIUM + VITAMIN D [Concomitant]
     Active Substance: CALCIUM\VITAMIN D
     Indication: MINERAL SUPPLEMENTATION

REACTIONS (1)
  - Carcinoma in situ of skin [Recovered/Resolved]

NARRATIVE: CASE EVENT DATE: 20161031
